FAERS Safety Report 11341504 (Version 2)
Quarter: 2015Q4

REPORT INFORMATION
  Report Type: Spontaneous
  Country: US (occurrence: US)
  Receive Date: 20150805
  Receipt Date: 20151001
  Transmission Date: 20160304
  Serious: No
  Sender: FDA-Public Use
  Company Number: US-JNJFOC-20150709569

PATIENT
  Sex: Female
  Weight: 63.5 kg

DRUGS (4)
  1. LASIX [Concomitant]
     Active Substance: FUROSEMIDE
     Indication: HYPOTHYROIDISM
     Route: 048
     Dates: start: 199611
  2. PARAFON FORTE [Suspect]
     Active Substance: CHLORZOXAZONE
     Indication: PAIN
     Dosage: 750MG /TABLET/500MG/4 TIMES A??DAY/ORAL
     Route: 048
  3. PARAFON FORTE [Suspect]
     Active Substance: CHLORZOXAZONE
     Indication: MUSCLE SPASMS
     Dosage: 750MG /TABLET/500MG/4 TIMES A??DAY/ORAL
     Route: 048
  4. SYNTHROID [Concomitant]
     Active Substance: LEVOTHYROXINE SODIUM
     Indication: HYPOTHYROIDISM
     Route: 048
     Dates: start: 199611

REACTIONS (3)
  - Inappropriate schedule of drug administration [Unknown]
  - Drug dose omission [Unknown]
  - Adverse event [Unknown]

NARRATIVE: CASE EVENT DATE: 2015
